FAERS Safety Report 18587904 (Version 2)
Quarter: 2021Q1

REPORT INFORMATION
  Report Type: Spontaneous
  Country: US (occurrence: US)
  Receive Date: 20201207
  Receipt Date: 20210218
  Transmission Date: 20210419
  Serious: No
  Sender: FDA-Public Use
  Company Number: US-SA-2020SA346984

PATIENT
  Age: 45 Year
  Sex: Female

DRUGS (1)
  1. DUPIXENT [Suspect]
     Active Substance: DUPILUMAB
     Indication: ASTHMA
     Dosage: 300 MG, QOW
     Route: 058
     Dates: start: 20201117

REACTIONS (4)
  - Dyspnoea [Unknown]
  - Injection site swelling [Unknown]
  - Injection site mass [Unknown]
  - Product use issue [Unknown]

NARRATIVE: CASE EVENT DATE: 20201117
